FAERS Safety Report 10129029 (Version 2)
Quarter: 2014Q2

REPORT INFORMATION
  Report Type: Spontaneous
  Country: US (occurrence: US)
  Receive Date: 20140428
  Receipt Date: 20140519
  Transmission Date: 20141212
  Serious: No
  Sender: FDA-Public Use
  Company Number: US-TEVA-477994USA

PATIENT
  Age: 20 Year
  Sex: Female
  Weight: 90.8 kg

DRUGS (1)
  1. PLAN B ONE-STEP [Suspect]
     Indication: POST COITAL CONTRACEPTION
     Dosage: 1.5 MILLIGRAM DAILY;
     Route: 048
     Dates: start: 20140324, end: 20140324

REACTIONS (7)
  - Back pain [Recovered/Resolved]
  - Cervix disorder [Recovered/Resolved]
  - Increased appetite [Recovered/Resolved]
  - Vaginal discharge [Recovered/Resolved]
  - Dizziness [Recovered/Resolved]
  - Abdominal pain lower [Recovered/Resolved]
  - Fatigue [Recovered/Resolved]
